FAERS Safety Report 8816963 (Version 1)
Quarter: 2012Q4

REPORT INFORMATION
  Report Type: Spontaneous
  Country: US (occurrence: None)
  Receive Date: 20121002
  Receipt Date: 20121002
  Transmission Date: 20130627
  Serious: Yes (Other)
  Sender: FDA-Public Use
  Company Number: None

PATIENT
  Age: 61 Year
  Sex: Male
  Weight: 85.9 kg

DRUGS (3)
  1. KRYSTEXXA [Suspect]
     Indication: GOUT
     Dosage: 8mg every 4 weeks IV
     Route: 042
     Dates: start: 20111220, end: 20120928
  2. PROGRAF [Suspect]
     Indication: KIDNEY TRANSPLANT
     Dosage: 0.5mg one twice daily po
     Route: 048
     Dates: start: 20060502, end: 20120928
  3. PROGRAF [Suspect]
     Indication: IMMUNOSUPPRESSANT DRUG THERAPY
     Dosage: 0.5mg one twice daily po
     Route: 048
     Dates: start: 20060502, end: 20120928

REACTIONS (2)
  - Thrombocytopenia [None]
  - Oedema [None]
